FAERS Safety Report 11770495 (Version 2)
Quarter: 2015Q4

REPORT INFORMATION
  Report Type: Spontaneous
  Country: US (occurrence: US)
  Receive Date: 20151123
  Receipt Date: 20151123
  Transmission Date: 20160304
  Serious: No
  Sender: FDA-Public Use
  Company Number: US-PERRIGO-15US008574

PATIENT
  Age: 78 Year
  Sex: Male
  Weight: 79.37 kg

DRUGS (9)
  1. MIRACLE ALOE CREAM [Suspect]
     Active Substance: ALLANTOIN
     Indication: RASH
     Dosage: SMALL AMOUNT, QD
     Route: 061
     Dates: start: 201508
  2. TERAZOSIN [Concomitant]
     Active Substance: TERAZOSIN\TERAZOSIN HYDROCHLORIDE
     Indication: HYPERTENSION
     Dosage: 5MG
     Route: 065
  3. CLOPIDOGREL [Concomitant]
     Active Substance: CLOPIDOGREL BISULFATE
     Indication: STENT PLACEMENT
     Dosage: UNK
     Route: 065
  4. ISORBIDE [Concomitant]
     Active Substance: ISOSORBIDE
     Indication: CARDIAC DISORDER
     Dosage: UNK
     Route: 065
     Dates: start: 201502, end: 201508
  5. POLYETHYLENE GLYCOL 3350. [Suspect]
     Active Substance: POLYETHYLENE GLYCOL 3350
     Dosage: 17 G, QD
     Route: 048
     Dates: start: 20150804
  6. TAZTIA XT [Concomitant]
     Active Substance: DILTIAZEM HYDROCHLORIDE
     Indication: HYPERTENSION
     Dosage: UNK
     Route: 065
  7. POLYETHYLENE GLYCOL 3350. [Suspect]
     Active Substance: POLYETHYLENE GLYCOL 3350
     Indication: CONSTIPATION
     Dosage: 17 G, PRN
     Route: 048
     Dates: start: 201506, end: 201508
  8. LOSARTAN. [Concomitant]
     Active Substance: LOSARTAN
     Indication: HYPERTENSION
     Dosage: UNK
     Route: 065
  9. ALPRAZOLAM. [Concomitant]
     Active Substance: ALPRAZOLAM
     Indication: NERVOUSNESS
     Dosage: UNK
     Route: 065

REACTIONS (2)
  - Incorrect drug administration duration [Not Recovered/Not Resolved]
  - Paraesthesia [Unknown]

NARRATIVE: CASE EVENT DATE: 201508
